FAERS Safety Report 7438407-0 (Version None)
Quarter: 2011Q2

REPORT INFORMATION
  Report Type: 
  Country: None (occurrence: None)
  Receive Date: 20110426
  Receipt Date: 20110404
  Transmission Date: 20111010
  Serious: Yes (Other)
  Sender: FDA-Public Use
  Company Number: US-BAYER-201039747NA

PATIENT
  Age: 32 Year
  Sex: Female
  Weight: 77 kg

DRUGS (5)
  1. YAZ [Suspect]
     Indication: ACNE
     Dosage: UNK
     Route: 048
     Dates: start: 20080501, end: 20090501
  2. ULTRAVATE [Concomitant]
     Dosage: UNK UNK, BID
     Route: 061
  3. ASPIRIN [Concomitant]
     Dosage: 81 MG, UNK
  4. HYDROCODONE [Concomitant]
     Dosage: UNK
     Dates: start: 20080916
  5. SULFAMETHOXAZOLE [Concomitant]
     Dosage: UNK
     Dates: start: 20081218

REACTIONS (2)
  - DEEP VEIN THROMBOSIS [None]
  - THROMBOPHLEBITIS [None]
